FAERS Safety Report 10046038 (Version 1)
Quarter: 2014Q1

REPORT INFORMATION
  Report Type: Spontaneous
  Country: CH (occurrence: CH)
  Receive Date: 20140331
  Receipt Date: 20140331
  Transmission Date: 20141002
  Serious: Yes (Hospitalization, Other)
  Sender: FDA-Public Use
  Company Number: CH-009507513-1403CHE013065

PATIENT
  Age: 31 Year
  Sex: Male

DRUGS (3)
  1. REMERON [Suspect]
     Dosage: 2 TO 3 DOSE UNIT , ONCE
     Route: 048
     Dates: start: 20140316, end: 20140316
  2. ALPRAZOLAM [Suspect]
     Dosage: 30-40MG DAILY, ONCE
     Route: 048
     Dates: start: 20140316, end: 20140316
  3. ALCOHOL [Suspect]
     Dosage: BOTTLE OF VINE AND 1.5 I OF BEER
     Dates: start: 20140316, end: 20140316

REACTIONS (4)
  - Coma [Recovered/Resolved]
  - Suicide attempt [Recovered/Resolved]
  - Miosis [Recovered/Resolved]
  - Agitation [Recovered/Resolved]
